FAERS Safety Report 5462901-5 (Version None)
Quarter: 2007Q3

REPORT INFORMATION
  Report Type: 
  Country: None (occurrence: None)
  Receive Date: 20070920
  Receipt Date: 20070326
  Transmission Date: 20080115
  Serious: No
  Sender: FDA-Public Use
  Company Number: US-BAUSCH-2007BL000979

PATIENT
  Age: 76 Year
  Sex: Male

DRUGS (1)
  1. NEOMYCIN AND POLYMYXIN B SULFATES AND HYDROCORTISONE OTIC SUSPENSION [Suspect]
     Route: 047
     Dates: start: 20070301, end: 20070323

REACTIONS (6)
  - ABNORMAL SENSATION IN EYE [None]
  - EYE DISCHARGE [None]
  - MEDICATION ERROR [None]
  - OCULAR DISCOMFORT [None]
  - OCULAR HYPERAEMIA [None]
  - WRONG DRUG ADMINISTERED [None]
